FAERS Safety Report 15536469 (Version 1)
Quarter: 2018Q4

REPORT INFORMATION
  Report Type: Other
  Country: CA (occurrence: CA)
  Receive Date: 20181022
  Receipt Date: 20181022
  Transmission Date: 20190205
  Serious: Yes (Other)
  Sender: FDA-Public Use
  Company Number: CA-APOTEX-2018AP022646

PATIENT
  Age: 34 Year
  Sex: Female
  Weight: 92 kg

DRUGS (1)
  1. APO-AMOXI CLAV 875/125 [Suspect]
     Active Substance: AMOXICILLIN\CLAVULANATE POTASSIUM
     Indication: INFLUENZA
     Dosage: 1 DF, BID
     Route: 048

REACTIONS (17)
  - Dysuria [Unknown]
  - Diarrhoea [Unknown]
  - Genital swelling [Unknown]
  - Feeding disorder [Unknown]
  - Genital erythema [Unknown]
  - Genital pain [Unknown]
  - Pruritus genital [Unknown]
  - Chills [Unknown]
  - Pain [Unknown]
  - Dyschezia [Unknown]
  - Anal pruritus [Unknown]
  - Abdominal discomfort [Unknown]
  - Anorectal discomfort [Unknown]
  - Genital discomfort [Unknown]
  - Genital burning sensation [Unknown]
  - Proctalgia [Unknown]
  - Nausea [Unknown]
